FAERS Safety Report 8054725-X (Version None)
Quarter: 2012Q1

REPORT INFORMATION
  Report Type: 
  Country: None (occurrence: None)
  Receive Date: 20120119
  Receipt Date: 20120116
  Transmission Date: 20120608
  Serious: No
  Sender: FDA-Public Use
  Company Number: US-PFIZER INC-2012012436

PATIENT
  Sex: Female
  Weight: 74.376 kg

DRUGS (6)
  1. LISINOPRIL [Concomitant]
     Indication: HYPERTENSION
     Dosage: 20 MG, UNK
  2. PROTONIX [Suspect]
     Indication: DUODENAL ULCER
     Dosage: 40 MG, 1X/DAY
     Route: 048
     Dates: start: 20111101, end: 20111201
  3. PRAVASTATIN [Concomitant]
     Indication: BLOOD CHOLESTEROL INCREASED
     Dosage: 40 MG, UNK
  4. PROTONIX [Suspect]
     Dosage: UNK
  5. AMLODIPINE [Concomitant]
     Indication: HYPERTENSION
     Dosage: 10 MG, UNK
  6. NAPROXEN [Concomitant]
     Indication: SPONDYLITIS
     Dosage: 500 MG, UNK

REACTIONS (4)
  - VOMITING [None]
  - ABDOMINAL PAIN UPPER [None]
  - BLOOD CHOLESTEROL INCREASED [None]
  - MALAISE [None]
